FAERS Safety Report 9314948 (Version 2)
Quarter: 2013Q3

REPORT INFORMATION
  Report Type: Spontaneous
  Country: CA (occurrence: CA)
  Receive Date: 20130529
  Receipt Date: 20130715
  Transmission Date: 20140515
  Serious: Yes (Other)
  Sender: FDA-Public Use
  Company Number: CA-JNJFOC-20130514808

PATIENT
  Age: 94 Year
  Sex: Female
  Weight: 54.1 kg

DRUGS (3)
  1. XARELTO [Suspect]
     Indication: HIP FRACTURE
     Route: 048
     Dates: start: 20130426
  2. XARELTO [Suspect]
     Indication: THROMBOSIS PROPHYLAXIS
     Route: 048
     Dates: start: 20130426
  3. XARELTO [Suspect]
     Indication: HIP ARTHROPLASTY
     Route: 048
     Dates: start: 20130426

REACTIONS (1)
  - Deep vein thrombosis [Recovered/Resolved]
